FAERS Safety Report 12338442 (Version 1)
Quarter: 2016Q2

REPORT INFORMATION
  Report Type: Spontaneous
  Country: SI (occurrence: SI)
  Receive Date: 20160505
  Receipt Date: 20160505
  Transmission Date: 20160815
  Serious: Yes (Other)
  Sender: FDA-Public Use
  Company Number: SI-009507513-1604SVN017861

PATIENT
  Age: 76 Year
  Sex: Female

DRUGS (3)
  1. INTRON A [Suspect]
     Active Substance: INTERFERON ALFA-2B
     Indication: MALIGNANT MELANOMA
     Dosage: 10 MILLION IU 3 X WEEKLY FOR 13 WEEKS
     Route: 058
     Dates: start: 2012, end: 201207
  2. INTRON A [Suspect]
     Active Substance: INTERFERON ALFA-2B
     Dosage: 15 MILLION IU 3 X WEEKLY, FOR 13 WEEKS.
     Route: 058
     Dates: end: 2012
  3. INTRON A [Suspect]
     Active Substance: INTERFERON ALFA-2B
     Dosage: 35 MILLION IU 20 X IN 8 WEEKS
     Route: 042
     Dates: start: 2011

REACTIONS (1)
  - Metastatic malignant melanoma [Recovering/Resolving]

NARRATIVE: CASE EVENT DATE: 2013
